FAERS Safety Report 19758870 (Version 2)
Quarter: 2021Q3

REPORT INFORMATION
  Report Type: Report from Study
  Country: None (occurrence: US)
  Receive Date: 20210829
  Receipt Date: 20210902
  Transmission Date: 20211014
  Serious: Yes (Death, Hospitalization, Other)
  Sender: FDA-Public Use
  Company Number: US-ABBVIE-21K-163-4059049-00

PATIENT
  Age: 89 Year
  Sex: Male

DRUGS (2)
  1. LUPRON DEPOT [Suspect]
     Active Substance: LEUPROLIDE ACETATE
     Indication: PROSTATE CANCER
     Route: 030
     Dates: start: 2017
  2. ERLEADA [Concomitant]
     Active Substance: APALUTAMIDE
     Indication: PROSTATE CANCER

REACTIONS (12)
  - Back pain [Recovered/Resolved]
  - Pneumonia [Recovered/Resolved]
  - Spinal fusion acquired [Unknown]
  - COVID-19 [Recovered/Resolved]
  - Dysstasia [Recovered/Resolved]
  - Myalgia [Recovered/Resolved]
  - Sepsis [Recovered/Resolved]
  - Back pain [Recovered/Resolved]
  - Gait inability [Recovered/Resolved]
  - Rhinorrhoea [Recovered/Resolved]
  - Pulmonary congestion [Fatal]
  - Post procedural complication [Unknown]

NARRATIVE: CASE EVENT DATE: 202103
